FAERS Safety Report 7603240-3 (Version None)
Quarter: 2011Q3

REPORT INFORMATION
  Report Type: 
  Country: None (occurrence: None)
  Receive Date: 20110712
  Receipt Date: 20110709
  Transmission Date: 20111222
  Serious: Yes (Other)
  Sender: FDA-Public Use
  Company Number: US-PFIZER INC-2011154766

PATIENT
  Sex: Female
  Weight: 81.633 kg

DRUGS (13)
  1. CHANTIX [Suspect]
     Indication: SMOKING CESSATION THERAPY
     Dosage: 0.5 MG, 1X/DAY
     Route: 048
     Dates: start: 20110501, end: 20110501
  2. ZANAFLEX [Concomitant]
     Dosage: UNK
  3. CHANTIX [Suspect]
     Dosage: UNK
     Route: 048
     Dates: start: 20110101, end: 20110101
  4. CHANTIX [Suspect]
     Dosage: 1 MG, 2X/DAY
     Route: 048
     Dates: start: 20110601, end: 20110706
  5. NEURONTIN [Concomitant]
     Dosage: UNK, 1X/DAY
  6. PRILOSEC [Concomitant]
     Dosage: UNK
  7. PROMETHAZINE [Concomitant]
     Indication: NAUSEA
     Dosage: UNK, 2X/DAY
  8. CHANTIX [Suspect]
     Dosage: 0.5 MG, 2X/DAY
     Route: 048
     Dates: start: 20110501, end: 20110101
  9. SIMVASTATIN [Concomitant]
     Dosage: UNK
  10. NUVIGIL [Concomitant]
     Dosage: UNK
  11. PLAVIX [Concomitant]
     Dosage: UNK
  12. METOPROLOL [Concomitant]
     Dosage: UNK
  13. BUSPAR [Concomitant]
     Dosage: UNK

REACTIONS (1)
  - BLOOD UREA NITROGEN/CREATININE RATIO INCREASED [None]
